FAERS Safety Report 8318064-1 (Version None)
Quarter: 2012Q2

REPORT INFORMATION
  Report Type: 
  Country: None (occurrence: None)
  Receive Date: 20120427
  Receipt Date: 20120413
  Transmission Date: 20120825
  Serious: Yes (Hospitalization)
  Sender: FDA-Public Use
  Company Number: US-ROCHE-1045337

PATIENT
  Age: 52 Year
  Sex: Female
  Weight: 72.09 kg

DRUGS (3)
  1. CARBOPLATIN [Suspect]
     Indication: OVARIAN EPITHELIAL CANCER
     Dosage: DOSE: 6 AUC ON DAY 1, DOSE REDUCED
     Route: 042
     Dates: start: 20111027
  2. AVASTIN [Suspect]
     Indication: OVARIAN EPITHELIAL CANCER
     Dosage: BEGAN WITH CYCLE 2 OVER 30-90 MINS ON DAY 1, THERAPY DELAYED
     Route: 042
     Dates: start: 20111027
  3. PACLITAXEL [Suspect]
     Indication: OVARIAN EPITHELIAL CANCER
     Dosage: THERAPY DELAYED
     Route: 042
     Dates: start: 20111027

REACTIONS (8)
  - ANAEMIA [None]
  - BRONCHOSPASM [None]
  - COUGH [None]
  - DYSPNOEA [None]
  - ORTHOPNOEA [None]
  - LOCAL SWELLING [None]
  - OROPHARYNGEAL PAIN [None]
  - WHEEZING [None]
